FAERS Safety Report 16946730 (Version 2)
Quarter: 2019Q4

REPORT INFORMATION
  Report Type: Spontaneous
  Country: US (occurrence: US)
  Receive Date: 20191022
  Receipt Date: 20191028
  Transmission Date: 20200122
  Serious: No
  Sender: FDA-Public Use
  Company Number: US-PFIZER INC-2019450905

PATIENT
  Age: 2 Year
  Sex: Female

DRUGS (1)
  1. SIROLIMUS. [Suspect]
     Active Substance: SIROLIMUS
     Indication: LYMPHATIC DISORDER
     Dosage: UNK, DAILY

REACTIONS (5)
  - Condition aggravated [Unknown]
  - Product use issue [Unknown]
  - Pyrexia [Unknown]
  - Drug ineffective [Unknown]
  - Off label use [Unknown]
